FAERS Safety Report 11632891 (Version 1)
Quarter: 2015Q4

REPORT INFORMATION
  Report Type: Spontaneous
  Country: US (occurrence: US)
  Receive Date: 20151015
  Receipt Date: 20151015
  Transmission Date: 20160304
  Serious: Yes (Other)
  Sender: FDA-Public Use
  Company Number: US-BAYER-2015-441408

PATIENT
  Age: 60 Year
  Sex: Female
  Weight: 79.37 kg

DRUGS (1)
  1. MIRALAX [Suspect]
     Active Substance: POLYETHYLENE GLYCOL 3350
     Indication: CONSTIPATION
     Dosage: UNK UNK, PRN
     Route: 048
     Dates: start: 2005

REACTIONS (5)
  - Diverticulum [None]
  - Product use issue [None]
  - Gallbladder disorder [Recovered/Resolved]
  - Diabetes mellitus [None]
  - Palpitations [None]

NARRATIVE: CASE EVENT DATE: 2006
